FAERS Safety Report 8433697-X (Version None)
Quarter: 2012Q2

REPORT INFORMATION
  Report Type: 
  Country: None (occurrence: None)
  Receive Date: 20120613
  Receipt Date: 20120604
  Transmission Date: 20120825
  Serious: Yes (Other)
  Sender: FDA-Public Use
  Company Number: CHPA2012US005597

PATIENT
  Age: 32 Year
  Sex: Female

DRUGS (1)
  1. PREVACID 24 HR [Suspect]
     Indication: DYSPEPSIA
     Dosage: 15 MG, QD
     Route: 048
     Dates: start: 20110101, end: 20110101

REACTIONS (6)
  - INCORRECT DRUG ADMINISTRATION DURATION [None]
  - COELIAC DISEASE [None]
  - OFF LABEL USE [None]
  - MALAISE [None]
  - THERAPEUTIC RESPONSE UNEXPECTED [None]
  - FATIGUE [None]
